FAERS Safety Report 4817106-5 (Version None)
Quarter: 2005Q4

REPORT INFORMATION
  Report Type: 
  Country: None (occurrence: None)
  Receive Date: 20051101
  Receipt Date: 20051017
  Transmission Date: 20060501
  Serious: Yes (Disabling)
  Sender: FDA-Public Use
  Company Number: GBWYE060917OCT05

PATIENT
  Sex: Female
  Weight: 25.5 kg

DRUGS (3)
  1. ENBREL [Suspect]
     Indication: POLYARTHRITIS
     Route: 058
     Dates: start: 20050516
  2. IBUPROFEN [Concomitant]
     Indication: POLYARTHRITIS
     Route: 048
     Dates: start: 20000801
  3. PREDNISOLONE [Concomitant]
     Indication: POLYARTHRITIS
     Route: 048
     Dates: start: 20050501

REACTIONS (4)
  - INJECTION SITE PRURITUS [None]
  - INJECTION SITE RASH [None]
  - NAUSEA [None]
  - VOMITING [None]
